FAERS Safety Report 21931310 (Version 2)
Quarter: 2024Q3

REPORT INFORMATION
  Report Type: Other
  Country: AU (occurrence: AU)
  Receive Date: 20230131
  Receipt Date: 20240710
  Transmission Date: 20241017
  Serious: Yes (Other)
  Sender: ASTELLAS
  Company Number: AU-ASTELLAS-2021US039773

PATIENT
  Age: 24 Year
  Sex: Male

DRUGS (7)
  1. TACROLIMUS [Suspect]
     Active Substance: TACROLIMUS
     Indication: Liver transplant
     Dosage: UNK UNK, UNKNOWN FREQ.
     Route: 065
  2. TACROLIMUS [Suspect]
     Active Substance: TACROLIMUS
     Indication: Immunosuppressant drug therapy
  3. PREDNISONE [Suspect]
     Active Substance: PREDNISONE
     Indication: Liver transplant
     Dosage: UNK UNK, UNKNOWN FREQ.
     Route: 065
  4. PREDNISONE [Suspect]
     Active Substance: PREDNISONE
     Indication: Immunosuppressant drug therapy
  5. MYCOPHENOLATE MOFETIL [Suspect]
     Active Substance: MYCOPHENOLATE MOFETIL
     Indication: Liver transplant
     Dosage: UNK UNK, UNKNOWN FREQ.
     Route: 065
     Dates: start: 2017
  6. MYCOPHENOLATE MOFETIL [Suspect]
     Active Substance: MYCOPHENOLATE MOFETIL
     Indication: Immunosuppressant drug therapy
  7. AZATHIOPRINE [Suspect]
     Active Substance: AZATHIOPRINE
     Indication: Immunosuppression
     Dosage: UNK UNK, UNKNOWN FREQ.
     Route: 065
     Dates: end: 2017

REACTIONS (5)
  - Autoimmune hepatitis [Unknown]
  - Intestinal adenocarcinoma [Unknown]
  - Small intestine adenocarcinoma [Unknown]
  - Adenocarcinoma [Unknown]
  - Disease progression [Unknown]

NARRATIVE: CASE EVENT DATE: 20150101
